FAERS Safety Report 21384967 (Version 1)
Quarter: 2022Q3

REPORT INFORMATION
  Report Type: Spontaneous
  Country: US (occurrence: US)
  Receive Date: 20220928
  Receipt Date: 20220928
  Transmission Date: 20221027
  Serious: No
  Sender: FDA-Public Use
  Company Number: US-AVEO ONCOLOGY-2022-AVEO-US000392

PATIENT

DRUGS (12)
  1. FOTIVDA [Suspect]
     Active Substance: TIVOZANIB HYDROCHLORIDE
     Indication: Renal cell carcinoma
     Dosage: 1.34 MG, DAILY FOR 21 DAYS WITH 7 DAYS OFF (28-DAY CYCLE)
     Route: 048
     Dates: start: 20220412, end: 2022
  2. AMBIEN [Concomitant]
     Active Substance: ZOLPIDEM TARTRATE
  3. ASPIRIN [Concomitant]
     Active Substance: ASPIRIN
  4. BENZONATATE [Concomitant]
     Active Substance: BENZONATATE
  5. CRESTOR [Concomitant]
     Active Substance: ROSUVASTATIN CALCIUM
  6. LISINOPRIL [Concomitant]
     Active Substance: LISINOPRIL
  7. LOMOTIL [Concomitant]
     Active Substance: ATROPINE SULFATE\DIPHENOXYLATE HYDROCHLORIDE
  8. MAGNESIUM OXIDE [Concomitant]
     Active Substance: MAGNESIUM OXIDE
  9. METOPROLOL [Concomitant]
     Active Substance: METOPROLOL
  10. NITROSTAT [Concomitant]
     Active Substance: NITROGLYCERIN
     Route: 060
  11. OMEPRAZOLE [Concomitant]
     Active Substance: OMEPRAZOLE
  12. PAROXETINE [Concomitant]
     Active Substance: PAROXETINE

REACTIONS (1)
  - Disease progression [Unknown]
